FAERS Safety Report 6967882-0 (Version None)
Quarter: 2010Q3

REPORT INFORMATION
  Report Type: 
  Country: None (occurrence: None)
  Receive Date: 20100907
  Receipt Date: 20100518
  Transmission Date: 20110219
  Serious: Yes (Hospitalization, Disabling, Other)
  Sender: FDA-Public Use
  Company Number: A0860718A

PATIENT
  Age: 95 Year
  Sex: Female

DRUGS (4)
  1. REQUIP [Suspect]
     Indication: RESTLESS LEGS SYNDROME
     Dosage: .75MG AT NIGHT
     Route: 065
     Dates: end: 20100515
  2. NEURONTIN [Concomitant]
  3. ZOLOFT [Concomitant]
  4. UNSPECIFIED MEDICATIONS [Concomitant]

REACTIONS (2)
  - CONFUSIONAL STATE [None]
  - HALLUCINATION [None]
